FAERS Safety Report 7118819-5 (Version None)
Quarter: 2010Q4

REPORT INFORMATION
  Report Type: 
  Country: None (occurrence: None)
  Receive Date: 20101123
  Receipt Date: 20100809
  Transmission Date: 20110411
  Serious: No
  Sender: FDA-Public Use
  Company Number: US-KINGPHARMUSA00001-K201001006

PATIENT
  Sex: Female
  Weight: 64.853 kg

DRUGS (4)
  1. FLECTOR [Suspect]
     Indication: CONTUSION
     Dosage: 1 PATCH, BID
     Route: 061
     Dates: start: 20100731
  2. FLECTOR [Suspect]
     Indication: PAIN
  3. CHOLESTEROL- AND TRIGLYCERIDE REDUCERS [Concomitant]
     Indication: BLOOD CHOLESTEROL INCREASED
     Dosage: UNK
  4. ANTIHYPERTENSIVES [Concomitant]
     Indication: HYPERTENSION
     Dosage: UNK

REACTIONS (2)
  - APPLICATION SITE PAIN [None]
  - DRUG INEFFECTIVE [None]
